FAERS Safety Report 9671305 (Version 2)
Quarter: 2013Q4

REPORT INFORMATION
  Report Type: Spontaneous
  Country: BR (occurrence: BR)
  Receive Date: 20131106
  Receipt Date: 20131204
  Transmission Date: 20140711
  Serious: Yes (Other)
  Sender: FDA-Public Use
  Company Number: PHHY2013BR123089

PATIENT
  Age: 73 Year
  Sex: Female
  Weight: 110 kg

DRUGS (13)
  1. HYDROCHLOROTHIAZIDE [Suspect]
     Indication: HYPERTENSION
     Dosage: 2 DF, UNK
     Route: 048
  2. CALCIUM-SANDOZ FORTE + FORTISSIMUM [Suspect]
     Indication: CALCIUM DEFICIENCY
     Dosage: 1 DF, UNK
     Route: 048
  3. CALCIUM SANDOZ F [Suspect]
     Indication: CALCIUM DEFICIENCY
     Dosage: 1 DF, UNK
     Route: 048
  4. CALCITRIOL [Suspect]
     Indication: CALCIUM DEFICIENCY
     Dosage: 3 DF, UNK
     Route: 048
  5. CALCITRIOL [Suspect]
     Dosage: 2 DF, UNK
     Route: 048
     Dates: start: 201308
  6. MIRACALCIO VITAMIN D [Suspect]
     Indication: CALCIUM DEFICIENCY
     Dosage: 2 DF, (600MG/400IU )
     Route: 048
  7. PURAN T4 [Concomitant]
     Indication: THYROID DISORDER
     Dosage: 1 DF, UNK
     Route: 048
  8. LEXAPRO [Concomitant]
     Indication: DEPRESSED MOOD
     Dosage: 1 DF, UNK
     Route: 048
  9. GLIFAGE [Concomitant]
     Indication: DIABETES MELLITUS
     Dosage: 2 DF, UNK
     Route: 048
  10. SIMVASTATIN [Concomitant]
     Indication: BLOOD CHOLESTEROL
     Dosage: 1 DF, AT NIGHT BEFORE SLEEPING
     Route: 048
  11. CALCIFEROL [Concomitant]
     Indication: CALCIUM DEFICIENCY
     Dosage: 1 DF, UNK
     Route: 048
  12. ALENDRONATE SODIUM [Concomitant]
     Indication: CALCIUM DEFICIENCY
     Dosage: 1 DF, QW
     Route: 048
  13. LOSARTAN [Concomitant]
     Indication: HYPERTENSION
     Dosage: 2 DF, UNK
     Route: 048

REACTIONS (6)
  - Cataract [Recovered/Resolved]
  - Corneal dystrophy [Recovered/Resolved]
  - Asthma [Recovered/Resolved]
  - Constipation [Recovered/Resolved]
  - Haemorrhoids [Recovered/Resolved]
  - Pain [Recovered/Resolved]
